FAERS Safety Report 23792070 (Version 1)
Quarter: 2024Q2

REPORT INFORMATION
  Report Type: Spontaneous
  Country: US (occurrence: None)
  Receive Date: 20240429
  Receipt Date: 20240429
  Transmission Date: 20240716
  Serious: No
  Sender: FDA-Public Use
  Company Number: 2024A082285

PATIENT
  Sex: Female

DRUGS (1)
  1. FARXIGA [Suspect]
     Active Substance: DAPAGLIFLOZIN PROPANEDIOL
     Indication: Type 2 diabetes mellitus
     Route: 048

REACTIONS (8)
  - Hypersensitivity [Unknown]
  - Swelling face [Unknown]
  - Throat irritation [Unknown]
  - Urticaria [Unknown]
  - Discomfort [Unknown]
  - Somnolence [Unknown]
  - Intentional product misuse [Unknown]
  - Product dose omission issue [Unknown]
